FAERS Safety Report 12601682 (Version 1)
Quarter: 2016Q3

REPORT INFORMATION
  Report Type: Spontaneous
  Country: US (occurrence: None)
  Receive Date: 20160727
  Receipt Date: 20160727
  Transmission Date: 20161109
  Serious: Yes (Hospitalization)
  Sender: FDA-Public Use
  Company Number: None

PATIENT
  Age: 35 Year
  Sex: Male

DRUGS (3)
  1. NAPROXEN. [Suspect]
     Active Substance: NAPROXEN
     Indication: PAIN
     Route: 048
     Dates: start: 20160618, end: 20160618
  2. PENICILLIN [Concomitant]
     Active Substance: PENICILLIN
  3. DIPHENHYDRAMINE. [Concomitant]
     Active Substance: DIPHENHYDRAMINE

REACTIONS (6)
  - Lip exfoliation [None]
  - Scrotal ulcer [None]
  - Vision blurred [None]
  - Lip swelling [None]
  - Stevens-Johnson syndrome [None]
  - Lip discolouration [None]

NARRATIVE: CASE EVENT DATE: 20160418
